FAERS Safety Report 23982893 (Version 3)
Quarter: 2024Q3

REPORT INFORMATION
  Report Type: Spontaneous
  Country: AU (occurrence: AU)
  Receive Date: 20240617
  Receipt Date: 20240814
  Transmission Date: 20241017
  Serious: No
  Sender: MYLAN
  Company Number: AU-MYLANLABS-2024M1053199

PATIENT
  Sex: Female

DRUGS (1)
  1. EPIPEN [Suspect]
     Active Substance: EPINEPHRINE
     Indication: Product used for unknown indication
     Dosage: UNK
     Route: 065

REACTIONS (3)
  - Injury associated with device [Unknown]
  - Product quality issue [Unknown]
  - Accidental exposure to product [Unknown]
